FAERS Safety Report 6525572-2 (Version None)
Quarter: 2010Q1

REPORT INFORMATION
  Report Type: 
  Country: None (occurrence: None)
  Receive Date: 20100104
  Receipt Date: 20091224
  Transmission Date: 20100710
  Serious: Yes (Life-Threatening, Hospitalization)
  Sender: FDA-Public Use
  Company Number: TR-PFIZER INC-2009314365

PATIENT
  Sex: Male

DRUGS (1)
  1. ZELDOX [Suspect]
     Route: 048

REACTIONS (1)
  - SUICIDE ATTEMPT [None]
